FAERS Safety Report 10098027 (Version 1)
Quarter: 2014Q2

REPORT INFORMATION
  Report Type: Other
  Country: US (occurrence: US)
  Receive Date: 20140423
  Receipt Date: 20140423
  Transmission Date: 20141212
  Serious: Yes (Hospitalization)
  Sender: FDA-Public Use
  Company Number: US-MICRO LABS LIMITED-ML2014-00311

PATIENT
  Age: 25 Year
  Sex: Male

DRUGS (5)
  1. NEVIRAPINE [Suspect]
     Indication: HIV INFECTION
     Route: 065
  2. STAVUDINE [Suspect]
     Indication: HIV INFECTION
     Route: 065
  3. LAMIVUDINE [Suspect]
     Indication: HIV INFECTION
     Route: 065
  4. TENOFOVIR [Suspect]
     Indication: VIROLOGIC FAILURE
     Route: 065
  5. LOPINAVIR/RITONAVIR [Suspect]
     Indication: VIROLOGIC FAILURE
     Route: 065

REACTIONS (6)
  - Molluscum contagiosum [Recovered/Resolved]
  - Immune reconstitution inflammatory syndrome [Recovered/Resolved]
  - Pyrexia [Recovered/Resolved]
  - Bacterial infection [Recovered/Resolved]
  - Lymphadenopathy [Recovered/Resolved]
  - Hepatomegaly [Recovered/Resolved]
